FAERS Safety Report 9410531 (Version 2)
Quarter: 2013Q3

REPORT INFORMATION
  Report Type: Spontaneous
  Country: US (occurrence: US)
  Receive Date: 20130719
  Receipt Date: 20130813
  Transmission Date: 20140515
  Serious: Yes (Hospitalization, Other)
  Sender: FDA-Public Use
  Company Number: US-PFIZER INC-US-WYE-H16608710

PATIENT
  Age: 59 Year
  Sex: Female

DRUGS (3)
  1. ENBREL [Suspect]
     Indication: RHEUMATOID ARTHRITIS
     Dosage: 50 MG, QWK
     Route: 058
     Dates: start: 20061106
  2. SULFASALAZINE [Suspect]
     Dosage: UNK
     Route: 065
  3. TREXALL [Concomitant]
     Dosage: 8 - 2.5MG WEEKLY

REACTIONS (8)
  - Drug-induced liver injury [Recovered/Resolved]
  - Lumbar spinal stenosis [Recovered/Resolved]
  - Intervertebral disc degeneration [Unknown]
  - Scoliosis [Unknown]
  - Spinal fracture [Recovered/Resolved]
  - Pain [Recovered/Resolved]
  - Gait disturbance [Recovered/Resolved]
  - Upper respiratory tract infection [Recovered/Resolved]
